FAERS Safety Report 4468359-7 (Version None)
Quarter: 2004Q4

REPORT INFORMATION
  Report Type: 
  Country: None (occurrence: None)
  Receive Date: 20041007
  Receipt Date: 20040812
  Transmission Date: 20050328
  Serious: Yes (Other)
  Sender: FDA-Public Use
  Company Number: PHBS2004CA10682

PATIENT
  Sex: Female

DRUGS (1)
  1. ESTRADIOL [Suspect]
     Dosage: 37.5 UG/DAY
     Route: 062
     Dates: start: 20040701, end: 20040806

REACTIONS (6)
  - APPLICATION SITE ERYTHEMA [None]
  - ERYTHEMA [None]
  - HYPOAESTHESIA [None]
  - PRURITUS [None]
  - SKIN IRRITATION [None]
  - SWELLING FACE [None]
